FAERS Safety Report 16522730 (Version 2)
Quarter: 2020Q2

REPORT INFORMATION
  Report Type: Other
  Country: DE (occurrence: DE)
  Receive Date: 20190703
  Receipt Date: 20200601
  Transmission Date: 20200713
  Serious: Yes (Other)
  Sender: FDA-Public Use
  Company Number: DE-LUPIN PHARMACEUTICALS INC.-2018-07733

PATIENT
  Age: 81 Year
  Sex: Male

DRUGS (23)
  1. ALLOPURINOL. [Suspect]
     Active Substance: ALLOPURINOL
     Dosage: 300 MG, QD (IN THE MORNING)
     Route: 065
     Dates: start: 2014
  2. VALSACOR [Suspect]
     Active Substance: VALSARTAN
     Indication: PRODUCT USED FOR UNKNOWN INDICATION
     Dosage: UNK
     Route: 016
     Dates: start: 20180903, end: 20181009
  3. NOVORAPID [Suspect]
     Active Substance: INSULIN ASPART
     Indication: PRODUCT USED FOR UNKNOWN INDICATION
     Dosage: 24 IU, QD (TO THE NIGHT)
     Route: 065
     Dates: start: 2018
  4. PANTOPRAZOL                        /01263201/ [Suspect]
     Active Substance: PANTOPRAZOLE
     Indication: PROPHYLAXIS AGAINST GASTROINTESTINAL ULCER
     Dosage: 40 MG, UNK (AS NEEDED IN THE MORNING)
     Route: 016
     Dates: start: 2018
  5. ENALAPRIL [Concomitant]
     Active Substance: ENALAPRIL
     Indication: PRODUCT USED FOR UNKNOWN INDICATION
     Dosage: UNK
     Route: 065
  6. TAMSULOSIN [Suspect]
     Active Substance: TAMSULOSIN
     Indication: PRODUCT USED FOR UNKNOWN INDICATION
     Dosage: 0.4 MG, QD
     Route: 016
     Dates: start: 2014
  7. NOVAMINSULFON [Suspect]
     Active Substance: METAMIZOLE
     Indication: PRODUCT USED FOR UNKNOWN INDICATION
     Dosage: UNK (IF NECESSARY 2-3X DAILY 20-30 DROP)
     Route: 016
     Dates: start: 2014
  8. AMLODIPINE BESYLATE. [Suspect]
     Active Substance: AMLODIPINE BESYLATE
     Dosage: 5 MG, (12 HRS IN THE MORNING AND IN THE EVENING)
     Route: 065
     Dates: start: 2014
  9. TORASEMID [Suspect]
     Active Substance: TORSEMIDE
     Indication: PRODUCT USED FOR UNKNOWN INDICATION
     Dosage: 40 MG, QD (20 IN THE MORNING, 20 IN THE EVENING)
     Route: 016
     Dates: start: 2014
  10. TORASEMID [Suspect]
     Active Substance: TORSEMIDE
     Dosage: 20 MILLIGRAM, BID
     Route: 016
     Dates: start: 2012
  11. NOVORAPID [Suspect]
     Active Substance: INSULIN ASPART
     Dosage: UNK (INTAKE IN THE MORNING 24, NOON 18, IN THE EVENING 20)
     Route: 065
     Dates: start: 2018
  12. VALSARTAN HEXAL [Suspect]
     Active Substance: VALSARTAN
     Indication: PRODUCT USED FOR UNKNOWN INDICATION
     Dosage: 160 MG, QD (IN THE MORNING)
     Route: 065
     Dates: start: 2014
  13. SIMVASTATIN. [Suspect]
     Active Substance: SIMVASTATIN
     Indication: PRODUCT USED FOR UNKNOWN INDICATION
     Dosage: 40 MG, QD (IN THE EVENING)
     Route: 065
     Dates: start: 2014
  14. ALLOPURINOL. [Suspect]
     Active Substance: ALLOPURINOL
     Indication: PRODUCT USED FOR UNKNOWN INDICATION
     Dosage: 100 MG, QD (IN THE MORNING)
     Route: 016
     Dates: start: 2018
  15. LANTUS [Suspect]
     Active Substance: INSULIN GLARGINE
     Dosage: 20 IU, QD (20 TO THE NIGHT)
     Route: 065
     Dates: start: 2014
  16. VALSARTAN HEXAL [Suspect]
     Active Substance: VALSARTAN
     Dosage: UNK
     Route: 065
     Dates: start: 20180903, end: 20181009
  17. AMLODIPINE BESYLATE. [Suspect]
     Active Substance: AMLODIPINE BESYLATE
     Indication: PRODUCT USED FOR UNKNOWN INDICATION
     Dosage: 5 MG, QD (IN EVENING)
     Route: 065
     Dates: start: 2018
  18. NOVORAPID [Suspect]
     Active Substance: INSULIN ASPART
     Dosage: UNK IN THE MORNING, AT NOON AND IN THE EVENING BETWEEN 8 AND 40 IU BEFORE THE MEAL )
     Route: 065
     Dates: start: 2012
  19. LANTUS [Suspect]
     Active Substance: INSULIN GLARGINE
     Indication: PRODUCT USED FOR UNKNOWN INDICATION
     Dosage: 24 IU, QD (24 TO THE NIGHT)
     Route: 016
     Dates: start: 2018
  20. CALCITRIOL. [Concomitant]
     Active Substance: CALCITRIOL
     Indication: PRODUCT USED FOR UNKNOWN INDICATION
     Dosage: 0.25 MG, QD (IN THE EVENING)
     Route: 065
     Dates: start: 2014
  21. CANDESARTAN. [Suspect]
     Active Substance: CANDESARTAN
     Indication: PRODUCT USED FOR UNKNOWN INDICATION
     Dosage: 16 MG, QD (MORNING)
     Route: 065
     Dates: start: 20181009
  22. NOVORAPID [Suspect]
     Active Substance: INSULIN ASPART
     Dosage: UNK (MORNING 24, NOON 18, EVENING 20)
     Route: 065
     Dates: start: 2014
  23. ASPIRIN. [Suspect]
     Active Substance: ASPIRIN
     Indication: PRODUCT USED FOR UNKNOWN INDICATION
     Dosage: 100 MG, QD (IN THE MORNING)
     Route: 016
     Dates: start: 2014

REACTIONS (14)
  - Muscle spasms [Unknown]
  - Dyspnoea exertional [Unknown]
  - Blood glucose increased [Unknown]
  - Pelvic pain [Unknown]
  - Chest discomfort [Unknown]
  - Myalgia [Unknown]
  - Peripheral swelling [Unknown]
  - Injection site swelling [Unknown]
  - Skin haemorrhage [Unknown]
  - Spinal pain [Unknown]
  - Dyspnoea [Unknown]
  - Rectal tenesmus [Unknown]
  - Asthenia [Unknown]
  - Nausea [Unknown]

NARRATIVE: CASE EVENT DATE: 201809
